FAERS Safety Report 11212626 (Version 14)
Quarter: 2018Q1

REPORT INFORMATION
  Report Type: Report from Study
  Country: US (occurrence: US)
  Receive Date: 20150623
  Receipt Date: 20180207
  Transmission Date: 20180508
  Serious: Yes (Hospitalization, Other)
  Sender: FDA-Public Use
  Company Number: US-ACTELION-A-NJ2015-111997

PATIENT
  Age: 79 Year
  Sex: Female
  Weight: 56.69 kg

DRUGS (33)
  1. FLONASE [Concomitant]
     Active Substance: FLUTICASONE PROPIONATE
     Dosage: 50 MCG, UNK
     Route: 055
  2. TORSEMIDE. [Concomitant]
     Active Substance: TORSEMIDE
     Dosage: 10 MG, BID
     Route: 048
  3. FISH OIL [Concomitant]
     Active Substance: FISH OIL
     Dosage: 1000 MG, QD
     Route: 048
  4. TYLENOL [Concomitant]
     Active Substance: ACETAMINOPHEN
     Dosage: 500 MG, Q6HRS, PRN
     Route: 048
  5. DOCUSATE [Concomitant]
     Active Substance: DOCUSATE
     Dosage: 300 MG, QD
     Route: 048
  6. OPSUMIT [Suspect]
     Active Substance: MACITENTAN
     Dosage: 10 MG, QD
     Route: 048
     Dates: start: 20141212
  7. ZYRTEC [Concomitant]
     Active Substance: CETIRIZINE HYDROCHLORIDE
     Dosage: 10 MG, QD
     Route: 048
  8. VITAMIN D [Concomitant]
     Active Substance: CHOLECALCIFEROL
     Dosage: 1000 UNK, QD
  9. IRON [Concomitant]
     Active Substance: IRON
     Dosage: 325 MG, BID
  10. DICLOFENAC [Concomitant]
     Active Substance: DICLOFENAC
     Dosage: 1 %, QID
     Route: 061
  11. SYMBICORT [Concomitant]
     Active Substance: BUDESONIDE\FORMOTEROL FUMARATE DIHYDRATE
     Dosage: 160 MCG - 4.5 MCG
     Route: 055
  12. VITAMIN B12 [Concomitant]
     Active Substance: CYANOCOBALAMIN
     Dosage: 1000 MCG, UNK
     Route: 048
  13. WARFARIN [Concomitant]
     Active Substance: WARFARIN
  14. LOSARTAN. [Concomitant]
     Active Substance: LOSARTAN
     Dosage: 12.5 MG, BID
  15. OXYGEN. [Concomitant]
     Active Substance: OXYGEN
     Dosage: 2 L, UNK
  16. SODIUM CHLORIDE. [Concomitant]
     Active Substance: SODIUM CHLORIDE
     Route: 055
  17. POTASSIUM CHLORIDE. [Concomitant]
     Active Substance: POTASSIUM CHLORIDE
     Dosage: 10 MEQ, QD
  18. VITAMIN D3 [Concomitant]
     Active Substance: CHOLECALCIFEROL
     Dosage: 1000 IU, QD
  19. LOSARTAN. [Concomitant]
     Active Substance: LOSARTAN
     Dosage: 25 MG, QD
     Route: 048
  20. OPSUMIT [Suspect]
     Active Substance: MACITENTAN
     Indication: PULMONARY HYPERTENSION
     Dosage: 10 MG, QD
     Route: 048
     Dates: start: 20141212
  21. REVATIO [Concomitant]
     Active Substance: SILDENAFIL CITRATE
     Dosage: 20 MG, TID
  22. ELIQUIS [Concomitant]
     Active Substance: APIXABAN
  23. ALBUTEROL. [Concomitant]
     Active Substance: ALBUTEROL
     Dosage: 2.5 MG, QID
     Route: 055
  24. BUDESONIDE. [Concomitant]
     Active Substance: BUDESONIDE
     Dosage: UNK, BID
     Route: 055
  25. ADEMPAS [Concomitant]
     Active Substance: RIOCIGUAT
     Dosage: UNK
     Dates: end: 20161103
  26. CLONAZEPAM. [Concomitant]
     Active Substance: CLONAZEPAM
     Dosage: 0.5 MG, QPM
  27. SIMBRINZA [Concomitant]
     Active Substance: BRIMONIDINE TARTRATE\BRINZOLAMIDE
     Dosage: 1 DROP, LT EYE, DAILY
  28. POLYETHYLENE GLYCOL [Concomitant]
     Active Substance: POLYETHYLENE GLYCOLS
  29. DIGOXIN. [Concomitant]
     Active Substance: DIGOXIN
  30. LINZESS [Concomitant]
     Active Substance: LINACLOTIDE
     Dosage: 145 MCG, UNK
     Route: 048
  31. OMEPRAZOLE. [Concomitant]
     Active Substance: OMEPRAZOLE
     Dosage: 40 MG, BID
     Route: 048
  32. SPIRONOLACTONE. [Concomitant]
     Active Substance: SPIRONOLACTONE
     Dosage: 25 MG, QD
     Route: 048
  33. COENZYME Q10 [Concomitant]
     Active Substance: UBIDECARENONE
     Dosage: 30 MG, QD
     Route: 048

REACTIONS (35)
  - Malaise [Unknown]
  - Blood pressure fluctuation [Unknown]
  - Fall [Unknown]
  - Eye contusion [Unknown]
  - Nasal congestion [Unknown]
  - Hypoaesthesia [Unknown]
  - Palpitations [Unknown]
  - Oesophagitis [Unknown]
  - Dizziness [Unknown]
  - Deep vein thrombosis [Recovered/Resolved]
  - Blood potassium decreased [Unknown]
  - Cataract [Unknown]
  - Cerebrovascular accident [Unknown]
  - Fluid retention [Unknown]
  - Loss of consciousness [Unknown]
  - Respiratory failure [Recovered/Resolved]
  - Therapy non-responder [Unknown]
  - Vision blurred [Unknown]
  - Pulmonary congestion [Unknown]
  - Increased tendency to bruise [Unknown]
  - Cardiac arrest [Recovered/Resolved]
  - Pneumonia [Recovering/Resolving]
  - Poor peripheral circulation [Unknown]
  - Productive cough [Unknown]
  - Pulmonary arterial hypertension [Unknown]
  - Neuralgia [Unknown]
  - Dyspnoea [Unknown]
  - Pleural effusion [Unknown]
  - Oedema peripheral [Unknown]
  - Oxygen saturation decreased [Recovering/Resolving]
  - Cataract operation [Unknown]
  - Heart rate increased [Unknown]
  - Gastrooesophageal reflux disease [Not Recovered/Not Resolved]
  - Cardiac pacemaker insertion [Recovered/Resolved]
  - Syncope [Unknown]

NARRATIVE: CASE EVENT DATE: 20150121
